FAERS Safety Report 5919187-4 (Version None)
Quarter: 2008Q4

REPORT INFORMATION
  Report Type: 
  Country: None (occurrence: None)
  Receive Date: 20081014
  Receipt Date: 20081014
  Transmission Date: 20090506
  Serious: Yes (Other)
  Sender: FDA-Public Use
  Company Number: None

PATIENT
  Age: 49 Year
  Sex: Male
  Weight: 92.5338 kg

DRUGS (10)
  1. OXALIPLATIN [Suspect]
     Indication: MALIGNANT PERITONEAL NEOPLASM
     Dosage: 178 MG EVERY 21 DAYS IV DRIP
     Route: 041
     Dates: start: 20080707
  2. FOLFOX -5-FLUOROURACIL [Concomitant]
  3. LEUCOVORIN CALCIUM [Concomitant]
  4. OXALIPLATIN [Concomitant]
  5. LEUCOVORIN CALCIUM [Concomitant]
  6. OXALIPLATIN [Concomitant]
  7. ONDANSETRON [Concomitant]
  8. DEXAMETHASONE [Concomitant]
  9. MAGNESIUM SULFATE [Concomitant]
  10. ACYCLOVIR [Concomitant]

REACTIONS (7)
  - FLUSHING [None]
  - HYPERHIDROSIS [None]
  - HYPOTENSION [None]
  - LOSS OF CONSCIOUSNESS [None]
  - PRURITUS [None]
  - SKIN WARM [None]
  - SYNCOPE [None]
